FAERS Safety Report 9197383 (Version 1)
Quarter: 2013Q1

REPORT INFORMATION
  Report Type: Spontaneous
  Country: US (occurrence: None)
  Receive Date: 20120709
  Receipt Date: 20120709
  Transmission Date: 20140127
  Serious: No
  Sender: FDA-Public Use
  Company Number: 2012HGS-003527

PATIENT
  Sex: Female
  Weight: 50.8 kg

DRUGS (5)
  1. BENLYSTA [Suspect]
     Indication: SYSTEMIC LUPUS ERYTHEMATOSUS
     Dosage: 1 IN 28 D, INTRAVENOUS DRIP
     Dates: start: 20120417
  2. IMURAN (AZATHIOPRINE) (AZATHIOPRINE) [Concomitant]
  3. AMBIEN (ZOLPIDEM TARTRATE) (ZOLPDEM TARTRATE) [Concomitant]
  4. XANAX  XANANAX (ALPRAZOLAM) (ALPRAZOLAM) [Concomitant]
  5. FISH OIL (FISH OIL) (FISH OIL) [Concomitant]

REACTIONS (3)
  - Muscle twitching [None]
  - Palpitations [None]
  - Dyspnoea [None]
